FAERS Safety Report 6582079-4 (Version None)
Quarter: 2010Q1

REPORT INFORMATION
  Report Type: 
  Country: None (occurrence: None)
  Receive Date: 20100216
  Receipt Date: 20100202
  Transmission Date: 20100710
  Serious: Yes (Hospitalization)
  Sender: FDA-Public Use
  Company Number: CH-RANBAXY-2010RR-30932

PATIENT
  Age: 55 Year
  Sex: Female

DRUGS (3)
  1. OLANZAPINE [Suspect]
     Dosage: 10 MG, UNK
  2. LITHIUM CARBONATE [Suspect]
     Indication: DEPRESSION
     Dosage: 900 MG, UNK
  3. PRAVASTATIN [Suspect]
     Indication: HYPERLIPIDAEMIA

REACTIONS (2)
  - DRUG INTERACTION [None]
  - RASH [None]
